FAERS Safety Report 7088359-0 (Version None)
Quarter: 2010Q4

REPORT INFORMATION
  Report Type: 
  Country: None (occurrence: None)
  Receive Date: 20101108
  Receipt Date: 20101027
  Transmission Date: 20110411
  Serious: Yes (Other)
  Sender: FDA-Public Use
  Company Number: FR-BAYER-201041723GPV

PATIENT
  Age: 34 Year
  Sex: Female
  Weight: 64 kg

DRUGS (1)
  1. MIRENA [Suspect]
     Indication: PRODUCT USED FOR UNKNOWN INDICATION
     Route: 015
     Dates: start: 20070607

REACTIONS (7)
  - ABDOMINAL PAIN [None]
  - ANTEPARTUM HAEMORRHAGE [None]
  - GESTATIONAL TROPHOBLASTIC DETACHMENT [None]
  - HYPOMENORRHOEA [None]
  - METRORRHAGIA [None]
  - PELVIC PAIN [None]
  - PREGNANCY WITH CONTRACEPTIVE DEVICE [None]
